FAERS Safety Report 4328649-5 (Version None)
Quarter: 2004Q2

REPORT INFORMATION
  Report Type: 
  Country: None (occurrence: None)
  Receive Date: 20040401
  Receipt Date: 20040324
  Transmission Date: 20050107
  Serious: Yes (Other)
  Sender: FDA-Public Use
  Company Number: PHEH2004US03396

PATIENT
  Age: 60 Year
  Sex: Female

DRUGS (2)
  1. VIVELLE-DOT [Suspect]
     Indication: HORMONE REPLACEMENT THERAPY
     Dosage: .05 MG, TWICE WEEKLY
     Route: 062
     Dates: start: 19940101
  2. FOSAMAX [Concomitant]
     Indication: OSTEOPOROSIS
     Dates: start: 19990101, end: 20031201

REACTIONS (3)
  - BILIARY CYST [None]
  - GALLBLADDER OPERATION [None]
  - HAEMANGIOMA OF LIVER [None]
